FAERS Safety Report 5744073-2 (Version None)
Quarter: 2008Q2

REPORT INFORMATION
  Report Type: 
  Country: None (occurrence: None)
  Receive Date: 20080516
  Receipt Date: 20080506
  Transmission Date: 20081010
  Serious: Yes (Hospitalization)
  Sender: FDA-Public Use
  Company Number: GXKR2008DE04197

PATIENT
  Age: 86 Year
  Sex: Female

DRUGS (1)
  1. TRAMADOL SANDOZ (NGX)(TRAMADOL) LIQUID, 100MG/ML [Suspect]
     Dosage: 20 DF, TID, ORAL
     Route: 048

REACTIONS (2)
  - ACCIDENTAL OVERDOSE [None]
  - WRONG TECHNIQUE IN DRUG USAGE PROCESS [None]
